FAERS Safety Report 19299432 (Version 1)
Quarter: 2021Q2

REPORT INFORMATION
  Report Type: Spontaneous
  Country: DE (occurrence: DE)
  Receive Date: 20210525
  Receipt Date: 20210525
  Transmission Date: 20210717
  Serious: Yes (Hospitalization)
  Sender: FDA-Public Use
  Company Number: DE-HIKMA PHARMACEUTICALS USA INC.-DE-H14001-21-54465

PATIENT
  Age: 76 Year
  Sex: Female
  Weight: 59 kg

DRUGS (16)
  1. CARBOPLATIN. [Suspect]
     Active Substance: CARBOPLATIN
     Indication: NON-SMALL CELL LUNG CANCER
     Dosage: UNKNOWN
     Route: 065
     Dates: start: 20160928, end: 20161214
  2. PANTOZOL [Concomitant]
     Active Substance: PANTOPRAZOLE SODIUM
     Indication: DYSPEPSIA
     Route: 065
  3. HCT?BETA [Concomitant]
     Indication: HYPERTONIA
     Route: 065
  4. ISDN?RATIOPHARM [Concomitant]
     Indication: MYOCARDIAL INFARCTION
     Route: 065
  5. MIRTAZAPIN BETA [Concomitant]
     Indication: INSOMNIA
     Route: 065
  6. BISOPROLOL?RATIOPHARM [Concomitant]
     Active Substance: BISOPROLOL
     Indication: MYOCARDIAL INFARCTION
     Route: 065
  7. ABRAXANE [Suspect]
     Active Substance: PACLITAXEL
     Indication: PRODUCT USED FOR UNKNOWN INDICATION
     Route: 041
     Dates: start: 20161109, end: 20161221
  8. CARMEN [Concomitant]
     Indication: HYPERTONIA
     Route: 065
  9. TAVANIC [Concomitant]
     Active Substance: LEVOFLOXACIN
     Indication: PRODUCT USED FOR UNKNOWN INDICATION
     Route: 065
     Dates: start: 20161130, end: 20161213
  10. ABRAXANE [Suspect]
     Active Substance: PACLITAXEL
     Indication: NON-SMALL CELL LUNG CANCER
     Route: 041
     Dates: start: 20160928
  11. INSUMAN BASAL [Concomitant]
     Active Substance: INSULIN HUMAN
     Indication: DIABETES MELLITUS
     Dosage: UNKNOWN
     Route: 065
  12. DIAZEPAM?RATIOPHARM [Concomitant]
     Active Substance: DIAZEPAM
     Indication: INSOMNIA
     Route: 065
  13. ASPIRIN. [Concomitant]
     Active Substance: ASPIRIN
     Indication: CEREBROVASCULAR ACCIDENT
     Route: 065
  14. DELIX [Concomitant]
     Indication: HYPERTONIA
     Route: 065
  15. ERYPO [Concomitant]
     Indication: ANAEMIA
     Dosage: UNKNOWN
     Route: 058
     Dates: start: 20161104, end: 20161104
  16. INSUMAN RAPID [Concomitant]
     Active Substance: INSULIN HUMAN
     Indication: DIABETES MELLITUS
     Dosage: UNKNOWN
     Route: 065

REACTIONS (1)
  - Subileus [Recovered/Resolved]

NARRATIVE: CASE EVENT DATE: 20161130
